FAERS Safety Report 4601729-2 (Version None)
Quarter: 2005Q1

REPORT INFORMATION
  Report Type: 
  Country: None (occurrence: None)
  Receive Date: 20050128
  Receipt Date: 20050114
  Transmission Date: 20050727
  Serious: Yes (Hospitalization)
  Sender: FDA-Public Use
  Company Number: 2005UW00809

PATIENT
  Age: 55 Year
  Sex: Male

DRUGS (5)
  1. CRESTOR [Suspect]
     Dosage: 5 MG  QD  PO
     Route: 048
     Dates: start: 20040501, end: 20050101
  2. DILTIAZEM [Concomitant]
  3. CLONIDINE [Concomitant]
  4. ROSIGLITAZONE [Concomitant]
  5. LEVOTHYROXINE [Concomitant]

REACTIONS (2)
  - RENAL FAILURE ACUTE [None]
  - RHABDOMYOLYSIS [None]
